FAERS Safety Report 6884728-X (Version None)
Quarter: 2010Q3

REPORT INFORMATION
  Report Type: 
  Country: None (occurrence: None)
  Receive Date: 20100729
  Receipt Date: 20070820
  Transmission Date: 20110219
  Serious: Yes (Hospitalization, Other)
  Sender: FDA-Public Use
  Company Number: US-PFIZER INC-2007068841

PATIENT
  Sex: Female
  Weight: 66.2 kg

DRUGS (2)
  1. CELEBREX [Suspect]
     Indication: BACK PAIN
     Dates: start: 20011101
  2. CELEBREX [Suspect]
     Indication: MUSCLE INJURY

REACTIONS (7)
  - ANXIETY [None]
  - CONSTIPATION [None]
  - DEPRESSION [None]
  - HAEMORRHOIDS [None]
  - HEADACHE [None]
  - PALPITATIONS [None]
  - VARICOSE VEIN [None]
